FAERS Safety Report 13350033 (Version 1)
Quarter: 2017Q1

REPORT INFORMATION
  Report Type: Spontaneous
  Country: GB (occurrence: GB)
  Receive Date: 20170320
  Receipt Date: 20170320
  Transmission Date: 20170429
  Serious: Yes (Congenital Anomaly, Other)
  Sender: FDA-Public Use
  Company Number: GB-GILEAD-2017-0262432

PATIENT
  Weight: 76.8 kg

DRUGS (1)
  1. TENOFOVIR DISOPROXIL FUMARATE. [Suspect]
     Active Substance: TENOFOVIR DISOPROXIL FUMARATE
     Indication: CHRONIC HEPATITIS B
     Route: 064
     Dates: start: 201509

REACTIONS (2)
  - Foetal exposure during pregnancy [Recovered/Resolved]
  - Anencephaly [Not Recovered/Not Resolved]

NARRATIVE: CASE EVENT DATE: 20151224
